FAERS Safety Report 16975551 (Version 1)
Quarter: 2019Q4

REPORT INFORMATION
  Report Type: Spontaneous
  Country: FR (occurrence: FR)
  Receive Date: 20191030
  Receipt Date: 20191030
  Transmission Date: 20200122
  Serious: Yes (Other)
  Sender: FDA-Public Use
  Company Number: FR-TOLMAR, INC.-19FR000873

PATIENT
  Sex: Female

DRUGS (2)
  1. ELIGARD [Suspect]
     Active Substance: LEUPROLIDE ACETATE
     Indication: BREAST CANCER STAGE I
     Dosage: 45 MG, Q6MONTHS
     Route: 058
     Dates: start: 201807
  2. TAMOXIFENE [TAMOXIFEN] [Concomitant]
     Active Substance: TAMOXIFEN

REACTIONS (9)
  - Product use issue [Unknown]
  - Product use in unapproved indication [Unknown]
  - Pain in extremity [Unknown]
  - Dizziness [Unknown]
  - Fluid retention [Recovered/Resolved]
  - Trigger finger [Unknown]
  - Fatigue [Unknown]
  - Hot flush [Unknown]
  - Visual acuity reduced [Unknown]
